FAERS Safety Report 5330851-0 (Version None)
Quarter: 2007Q2

REPORT INFORMATION
  Report Type: 
  Country: None (occurrence: None)
  Receive Date: 20070522
  Receipt Date: 20070514
  Transmission Date: 20071010
  Serious: Yes (Death, Hospitalization, Other)
  Sender: FDA-Public Use
  Company Number: JP-ELI_LILLY_AND_COMPANY-JP200704001355

PATIENT
  Age: 74 Year
  Sex: Male
  Weight: 55 kg

DRUGS (10)
  1. GEMZAR [Suspect]
     Indication: LUNG CARCINOMA CELL TYPE UNSPECIFIED STAGE IV
     Dosage: 1000 MG, OTHER
     Route: 042
     Dates: start: 20060928, end: 20060928
  2. NAVALBINE [Concomitant]
     Indication: LUNG CARCINOMA CELL TYPE UNSPECIFIED STAGE IV
     Dosage: 20 MG, OTHER
     Route: 042
     Dates: start: 20060928, end: 20060928
  3. MEILAX [Concomitant]
     Indication: DEPRESSION
     Dosage: 1 MG, 2/D
     Route: 048
     Dates: end: 20061009
  4. PREDONINE [Concomitant]
     Indication: DYSPNOEA
     Dosage: 10 MG, DAILY (1/D)
     Route: 050
     Dates: start: 20060727, end: 20061016
  5. PREDONINE [Concomitant]
     Dosage: 15 MG, DAILY (1/D)
     Route: 048
     Dates: start: 20061017, end: 20061218
  6. SOLANAX [Concomitant]
     Indication: INSOMNIA
     Dosage: 0.4 MG, DAILY (1/D)
     Route: 048
     Dates: start: 20061010, end: 20061218
  7. GASTER D /JPN/ [Concomitant]
     Indication: PROPHYLAXIS AGAINST GASTROINTESTINAL ULCER
     Dosage: 20 MG, DAILY (1/D)
     Route: 048
     Dates: start: 20060727, end: 20061218
  8. LOXONIN [Concomitant]
     Indication: BACK PAIN
     Dosage: 180 MG, DAILY (1/D)
     Route: 048
     Dates: start: 20060824, end: 20061218
  9. SELBEX [Concomitant]
     Indication: GASTRITIS PROPHYLAXIS
     Dosage: 1 D/F, 3/D
     Route: 048
     Dates: start: 20060824, end: 20061218
  10. ASPIRIN [Concomitant]
     Dosage: 100 MG, DAILY (1/D)
     Route: 048
     Dates: end: 20060928

REACTIONS (9)
  - INTERSTITIAL LUNG DISEASE [None]
  - MALIGNANT NEOPLASM PROGRESSION [None]
  - METASTASES TO CENTRAL NERVOUS SYSTEM [None]
  - PLATELET COUNT DECREASED [None]
  - PNEUMONIA [None]
  - PULMONARY FIBROSIS [None]
  - PYREXIA [None]
  - RESPIRATORY FAILURE [None]
  - WHITE BLOOD CELL COUNT DECREASED [None]
